FAERS Safety Report 7067586-2 (Version None)
Quarter: 2010Q4

REPORT INFORMATION
  Report Type: 
  Country: None (occurrence: None)
  Receive Date: 20101028
  Receipt Date: 20101020
  Transmission Date: 20110411
  Serious: Yes (Life-Threatening, Hospitalization)
  Sender: FDA-Public Use
  Company Number: JP-ASTRAZENECA-2009AC01550

PATIENT
  Age: 90 Year
  Sex: Female
  Weight: 39 kg

DRUGS (2)
  1. TENORMIN [Suspect]
     Indication: ATRIAL FIBRILLATION
     Route: 048
     Dates: end: 20090512
  2. SUNRYTHM [Suspect]
     Indication: ATRIAL FIBRILLATION
     Route: 048
     Dates: end: 20090512

REACTIONS (10)
  - ACIDOSIS [None]
  - CARDIAC VENTRICULAR DISORDER [None]
  - DEVICE MALFUNCTION [None]
  - DIALYSIS [None]
  - ELECTROCARDIOGRAM QRS COMPLEX PROLONGED [None]
  - HYPOGLYCAEMIA [None]
  - MEDICAL DEVICE COMPLICATION [None]
  - SINUS ARREST [None]
  - SINUS BRADYCARDIA [None]
  - TACHYCARDIA [None]
